FAERS Safety Report 7123843-2 (Version None)
Quarter: 2010Q4

REPORT INFORMATION
  Report Type: 
  Country: None (occurrence: None)
  Receive Date: 20101125
  Receipt Date: 20101122
  Transmission Date: 20110411
  Serious: Yes (Life-Threatening, Hospitalization, Other)
  Sender: FDA-Public Use
  Company Number: PHEH2009US16875

PATIENT
  Sex: Female
  Weight: 48.073 kg

DRUGS (16)
  1. LOPRESSOR [Suspect]
     Indication: PANIC ATTACK
     Dosage: 50 MG, Q12H
  2. LOPRESSOR [Suspect]
     Dosage: 25 MG, Q6H
  3. LOPRESSOR [Suspect]
     Dosage: 25 MG
  4. LOPRESSOR [Suspect]
     Dosage: 50 MG
  5. METOPROLOL SUCCINATE [Suspect]
  6. VALIUM [Suspect]
     Dosage: ^1/2 TABLET OF 0.25 MG^, THREE TIMES DAILY
  7. VALIUM [Suspect]
     Dosage: ^1 TABLET OF 0.25 MG^, THREE TIMES DAILY
  8. VALIUM [Suspect]
     Dosage: ^1/2 TABLET^, FOUR TIMES DAILY
  9. TOPROL-XL [Suspect]
  10. KLONOPIN [Suspect]
     Dosage: 0.25 MG
     Dates: start: 20091209
  11. ZENEX [Suspect]
  12. BENZODIAZEPINES [Suspect]
  13. ANTIDEPRESSANTS [Suspect]
     Dosage: UNK
     Dates: start: 20091209
  14. FEMHRT [Concomitant]
     Indication: HORMONE LEVEL ABNORMAL
     Dosage: 1.5/2.5 MG
  15. XANAX [Concomitant]
  16. ALPRAZOLAM [Concomitant]

REACTIONS (37)
  - ABDOMINAL DISCOMFORT [None]
  - ABNORMAL BEHAVIOUR [None]
  - ABNORMAL DREAMS [None]
  - ACTIVITIES OF DAILY LIVING IMPAIRED [None]
  - ALOPECIA [None]
  - ANXIETY [None]
  - APATHY [None]
  - APHAGIA [None]
  - APPARENT DEATH [None]
  - ATAXIA [None]
  - BED REST [None]
  - CARDIAC DISORDER [None]
  - CONDITION AGGRAVATED [None]
  - DEPRESSION [None]
  - DRUG INEFFECTIVE [None]
  - DRUG INTOLERANCE [None]
  - DRY MOUTH [None]
  - FEELING ABNORMAL [None]
  - HEADACHE [None]
  - HEART RATE INCREASED [None]
  - HEART RATE IRREGULAR [None]
  - HYPERVIGILANCE [None]
  - INSOMNIA [None]
  - LETHARGY [None]
  - MALAISE [None]
  - MOVEMENT DISORDER [None]
  - NAUSEA [None]
  - NERVOUSNESS [None]
  - NIGHTMARE [None]
  - PALPITATIONS [None]
  - PANIC ATTACK [None]
  - PERIARTHRITIS [None]
  - SENSATION OF FOREIGN BODY [None]
  - SNEEZING [None]
  - SOMNOLENCE [None]
  - SUPRAVENTRICULAR TACHYCARDIA [None]
  - WEIGHT DECREASED [None]
